FAERS Safety Report 5747248-1 (Version None)
Quarter: 2008Q2

REPORT INFORMATION
  Report Type: 
  Country: None (occurrence: None)
  Receive Date: 20080520
  Receipt Date: 20080506
  Transmission Date: 20081010
  Serious: No
  Sender: FDA-Public Use
  Company Number: 000882

PATIENT
  Age: 72 Year
  Sex: Male

DRUGS (2)
  1. PLETAL [Suspect]
     Indication: INTERMITTENT CLAUDICATION
     Dosage: 100 MG, BID, ORAL
     Route: 048
     Dates: start: 20070406
  2. FLUVASTATIN SODIUM (FLUVASTATIN SODIUM) [Concomitant]

REACTIONS (1)
  - PERIPHERAL ARTERIAL OCCLUSIVE DISEASE [None]
